FAERS Safety Report 4602236-3 (Version None)
Quarter: 2005Q1

REPORT INFORMATION
  Report Type: 
  Country: None (occurrence: None)
  Receive Date: 20050201
  Receipt Date: 20040811
  Transmission Date: 20050727
  Serious: Yes (Hospitalization)
  Sender: FDA-Public Use
  Company Number: 200420048BWH

PATIENT
  Age: 81 Year
  Sex: Male

DRUGS (2)
  1. AVELOX [Suspect]
     Indication: LOCALISED INFECTION
     Dosage: 400 MG, QD, ORAL
     Route: 048
  2. VANCOMYCIN [Suspect]

REACTIONS (3)
  - NEUTROPENIA [None]
  - NEUTROPHIL COUNT DECREASED [None]
  - WHITE BLOOD CELL COUNT DECREASED [None]
